FAERS Safety Report 7159977-6 (Version None)
Quarter: 2010Q4

REPORT INFORMATION
  Report Type: 
  Country: None (occurrence: None)
  Receive Date: 20101214
  Receipt Date: 20101130
  Transmission Date: 20110411
  Serious: Yes (Other)
  Sender: FDA-Public Use
  Company Number: BR-GENENTECH-310868

PATIENT
  Sex: Female

DRUGS (1)
  1. RITUXIMAB [Suspect]
     Indication: RHEUMATOID ARTHRITIS
     Dosage: UNK
     Route: 065
     Dates: start: 20100601, end: 20100615

REACTIONS (6)
  - CONFUSIONAL STATE [None]
  - COUGH [None]
  - DECREASED IMMUNE RESPONSIVENESS [None]
  - FUNGAL INFECTION [None]
  - PANCREATITIS [None]
  - PULMONARY MYCOSIS [None]
